FAERS Safety Report 16787529 (Version 1)
Quarter: 2019Q3

REPORT INFORMATION
  Report Type: Spontaneous
  Country: TR (occurrence: TR)
  Receive Date: 20190909
  Receipt Date: 20190909
  Transmission Date: 20191005
  Serious: Yes (Hospitalization)
  Sender: FDA-Public Use
  Company Number: TR-GLAXOSMITHKLINE-TR2019GSK162294

PATIENT
  Age: 27 Year
  Sex: Male

DRUGS (4)
  1. NAPROXEN. [Suspect]
     Active Substance: NAPROXEN
     Indication: ANALGESIC THERAPY
     Dosage: 750 MG, UNK (DAILY)
  2. INDOMETHACIN. [Suspect]
     Active Substance: INDOMETHACIN
     Indication: ANALGESIC THERAPY
     Dosage: 150 MG, UNK
  3. ISOTRETINOIN. [Suspect]
     Active Substance: ISOTRETINOIN
     Indication: ACNE
     Dosage: UNK
  4. DICLOFENAC [Suspect]
     Active Substance: DICLOFENAC
     Indication: ANALGESIC THERAPY
     Dosage: 150 MG, UNK (DAILY)

REACTIONS (10)
  - Sacroiliitis [Recovering/Resolving]
  - Back pain [Recovered/Resolved]
  - Fatigue [Recovering/Resolving]
  - Drug ineffective [Unknown]
  - Hidradenitis [Recovering/Resolving]
  - Joint space narrowing [Recovering/Resolving]
  - Musculoskeletal stiffness [Recovering/Resolving]
  - Condition aggravated [Recovered/Resolved]
  - Bone marrow oedema [Recovering/Resolving]
  - Arthralgia [Recovering/Resolving]
